FAERS Safety Report 6610224-0 (Version None)
Quarter: 2010Q1

REPORT INFORMATION
  Report Type: 
  Country: None (occurrence: None)
  Receive Date: 20100302
  Receipt Date: 20100219
  Transmission Date: 20100710
  Serious: Yes (Other)
  Sender: FDA-Public Use
  Company Number: US-JNJFOC-20100210737

PATIENT
  Age: 22 Month

DRUGS (2)
  1. ACETAMINOPHEN, UNSPECIFIED [Suspect]
  2. ACETAMINOPHEN, UNSPECIFIED [Suspect]
     Indication: DRUG USE FOR UNKNOWN INDICATION

REACTIONS (2)
  - HEPATOTOXICITY [None]
  - OVERDOSE [None]
